FAERS Safety Report 20875500 (Version 2)
Quarter: 2022Q3

REPORT INFORMATION
  Report Type: Spontaneous
  Country: US (occurrence: US)
  Receive Date: 20220526
  Receipt Date: 20220711
  Transmission Date: 20221027
  Serious: No
  Sender: FDA-Public Use
  Company Number: US-TWI PHARMACEUTICAL, INC-2022SCTW000049

PATIENT

DRUGS (7)
  1. DILTIAZEM HYDROCHLORIDE [Suspect]
     Active Substance: DILTIAZEM HYDROCHLORIDE
     Indication: Product used for unknown indication
     Dosage: 120 MG, QD
     Route: 048
     Dates: start: 20220325, end: 20220329
  2. WARFARIN [Concomitant]
     Active Substance: WARFARIN
     Indication: Coagulopathy
     Dosage: 1 MG, QD
     Route: 048
     Dates: start: 2016
  3. LEVOTHYROXINE [Concomitant]
     Active Substance: LEVOTHYROXINE
     Indication: Hypothyroidism
     Dosage: 75 MICROGRAM, QD
     Route: 048
  4. DIETARY SUPPLEMENT [Concomitant]
     Active Substance: DIETARY SUPPLEMENT
     Indication: Supplementation therapy
     Dosage: 1200 MG, BID ((BREAKFAST AND DINNER)
     Route: 048
  5. NIACIN [Concomitant]
     Active Substance: NIACIN
     Indication: Supplementation therapy
     Dosage: 500 MG, TID (BREAKFAST, LUNCH AND AT DINNER)
     Route: 048
  6. MAGNESIUM [Concomitant]
     Active Substance: MAGNESIUM
     Indication: Supplementation therapy
     Dosage: 250 MG, BID ((BREAKFAST AND DINNER)
     Route: 048
  7. CALCIUM WITH VITAMIN D3 [CALCIUM;COLECALCIFEROL] [Concomitant]
     Indication: Supplementation therapy
     Dosage: 600 MG, QD
     Route: 048

REACTIONS (2)
  - Peripheral swelling [Recovered/Resolved]
  - Muscle spasms [Not Recovered/Not Resolved]

NARRATIVE: CASE EVENT DATE: 20220327
